FAERS Safety Report 7639953-7 (Version None)
Quarter: 2011Q3

REPORT INFORMATION
  Report Type: 
  Country: None (occurrence: None)
  Receive Date: 20110727
  Receipt Date: 20110718
  Transmission Date: 20111222
  Serious: Yes (Hospitalization)
  Sender: FDA-Public Use
  Company Number: BR-ASTRAZENECA-2011SE43332

PATIENT
  Age: 66 Year
  Sex: Female
  Weight: 77 kg

DRUGS (3)
  1. ATACAND [Suspect]
     Indication: HYPERTENSION
     Route: 048
     Dates: start: 20070101, end: 20110714
  2. WARFARIN SODIUM [Concomitant]
     Indication: COAGULOPATHY
     Route: 048
  3. LIPITOR [Concomitant]
     Indication: HYPERCHOLESTEROLAEMIA
     Route: 048

REACTIONS (4)
  - COAGULATION FACTOR INCREASED [None]
  - BLOOD PRESSURE INADEQUATELY CONTROLLED [None]
  - ARRHYTHMIA [None]
  - DRUG INEFFECTIVE [None]
